FAERS Safety Report 7519445-6 (Version None)
Quarter: 2011Q2

REPORT INFORMATION
  Report Type: 
  Country: None (occurrence: None)
  Receive Date: 20110602
  Receipt Date: 20110525
  Transmission Date: 20111010
  Serious: Yes (Other)
  Sender: FDA-Public Use
  Company Number: US-PFIZER INC-2011113782

PATIENT
  Sex: Male
  Weight: 70.7 kg

DRUGS (6)
  1. LIPITOR [Suspect]
     Indication: CARDIAC PACEMAKER INSERTION
     Dosage: 20 MG, 1X/DAY
  2. COLACE [Concomitant]
     Dosage: 100 MG, UNK
  3. CENTRUM SILVER [Concomitant]
     Dosage: UNK
  4. PLAVIX [Concomitant]
     Indication: CARDIAC DISORDER
     Dosage: 75 MG, UNK
  5. ALTACE [Concomitant]
     Indication: CARDIAC DISORDER
     Dosage: 2.5 MG, UNK
  6. LIPITOR [Suspect]
     Indication: STENT PLACEMENT
     Dosage: 10 MG, DAILY
     Route: 048
     Dates: start: 20070101

REACTIONS (7)
  - BLOOD CHOLESTEROL INCREASED [None]
  - PYREXIA [None]
  - FATIGUE [None]
  - BLOOD GLUCOSE INCREASED [None]
  - GLOMERULAR FILTRATION RATE DECREASED [None]
  - BLOOD CREATININE INCREASED [None]
  - MYALGIA [None]
